FAERS Safety Report 11843925 (Version 3)
Quarter: 2016Q2

REPORT INFORMATION
  Report Type: Spontaneous
  Country: JP (occurrence: JP)
  Receive Date: 20151217
  Receipt Date: 20160503
  Transmission Date: 20160815
  Serious: Yes (Hospitalization)
  Sender: FDA-Public Use
  Company Number: JP-ROCHE-1678833

PATIENT
  Age: 67 Year
  Sex: Female

DRUGS (4)
  1. LUCENTIS [Suspect]
     Active Substance: RANIBIZUMAB
     Indication: MACULAR OEDEMA
     Dosage: PREFILLED SYRINGE?LAST DOSE PRIOR TO SAE: 02/JUL/2015
     Route: 050
     Dates: start: 20150402
  2. LUCENTIS [Suspect]
     Active Substance: RANIBIZUMAB
     Indication: RETINAL VEIN OCCLUSION
  3. LIOVEL [Concomitant]
     Active Substance: ALOGLIPTIN BENZOATE\PIOGLITAZONE HYDROCHLORIDE
  4. ZETIA [Concomitant]
     Active Substance: EZETIMIBE

REACTIONS (3)
  - Retinopathy proliferative [Recovering/Resolving]
  - Macular hole [Recovering/Resolving]
  - Retinal neovascularisation [Recovering/Resolving]

NARRATIVE: CASE EVENT DATE: 20151109
